FAERS Safety Report 9982655 (Version 1)
Quarter: 2014Q1

REPORT INFORMATION
  Report Type: Report from Study
  Country: US (occurrence: US)
  Receive Date: 20140307
  Receipt Date: 20140307
  Transmission Date: 20141002
  Serious: No
  Sender: FDA-Public Use
  Company Number: US-ABBVIE-13P-163-1175915-00

PATIENT
  Sex: Female
  Weight: 49.49 kg

DRUGS (13)
  1. HUMIRA [Suspect]
     Indication: RHEUMATOID ARTHRITIS
     Route: 058
     Dates: start: 201310
  2. ECOTRIN [Concomitant]
     Indication: PRODUCT USED FOR UNKNOWN INDICATION
  3. FOLIC ACID [Concomitant]
     Indication: PRODUCT USED FOR UNKNOWN INDICATION
  4. CRESTOR [Concomitant]
     Indication: PRODUCT USED FOR UNKNOWN INDICATION
  5. SYNTHROID [Concomitant]
     Indication: PRODUCT USED FOR UNKNOWN INDICATION
  6. TRIAMTERENE AND HYDROCHLOROTHIAZID [Concomitant]
     Indication: PRODUCT USED FOR UNKNOWN INDICATION
  7. DICYCLOMINE HCL [Concomitant]
     Indication: PRODUCT USED FOR UNKNOWN INDICATION
  8. TRIAZOLAM [Concomitant]
     Indication: PRODUCT USED FOR UNKNOWN INDICATION
  9. KLOR CON [Concomitant]
     Indication: PRODUCT USED FOR UNKNOWN INDICATION
  10. AMLODIPINE BESYLATE [Concomitant]
     Indication: PRODUCT USED FOR UNKNOWN INDICATION
  11. SERTRALINE [Concomitant]
     Indication: PRODUCT USED FOR UNKNOWN INDICATION
  12. HYDROCODONE W/APAP [Concomitant]
     Indication: PRODUCT USED FOR UNKNOWN INDICATION
  13. ALPRAZOLAM [Concomitant]
     Indication: PRODUCT USED FOR UNKNOWN INDICATION

REACTIONS (3)
  - Chills [Recovered/Resolved]
  - Depression [Recovered/Resolved]
  - Pyrexia [Recovered/Resolved]
